FAERS Safety Report 20575289 (Version 7)
Quarter: 2023Q1

REPORT INFORMATION
  Report Type: Spontaneous
  Country: US (occurrence: US)
  Receive Date: 20220310
  Receipt Date: 20230328
  Transmission Date: 20230417
  Serious: Yes (Hospitalization, Disabling, Other)
  Sender: FDA-Public Use
  Company Number: US-ORGANON-O2203USA000818

PATIENT
  Sex: Male

DRUGS (3)
  1. SINGULAIR [Suspect]
     Active Substance: MONTELUKAST SODIUM
     Indication: Asthma
     Dosage: 1 TABLET ONCE A DAY
     Route: 048
     Dates: start: 2019, end: 202007
  2. SINGULAIR [Suspect]
     Active Substance: MONTELUKAST SODIUM
     Indication: Hypersensitivity
  3. MONTELUKAST SODIUM [Suspect]
     Active Substance: MONTELUKAST SODIUM
     Dosage: UNK
     Dates: start: 2018, end: 2020

REACTIONS (9)
  - Neuropsychiatric symptoms [Not Recovered/Not Resolved]
  - Major depression [Not Recovered/Not Resolved]
  - Suicide attempt [Unknown]
  - Suicide attempt [Unknown]
  - Anxiety disorder [Not Recovered/Not Resolved]
  - Suicidal ideation [Unknown]
  - Illness [Unknown]
  - Insomnia [Recovering/Resolving]
  - Self-injurious ideation [Unknown]

NARRATIVE: CASE EVENT DATE: 20190101
